FAERS Safety Report 5806434-2 (Version None)
Quarter: 2008Q3

REPORT INFORMATION
  Report Type: 
  Country: None (occurrence: None)
  Receive Date: 20080710
  Receipt Date: 20080702
  Transmission Date: 20090109
  Serious: Yes (Death)
  Sender: FDA-Public Use
  Company Number: US-SANOFI-SYNTHELABO-A03200802667

PATIENT
  Sex: Female
  Weight: 59 kg

DRUGS (5)
  1. BLOOD PRESSURE MEDICATION NOS [Concomitant]
     Indication: DRUG USE FOR UNKNOWN INDICATION
     Dosage: UNK
     Route: 048
     Dates: end: 20080621
  2. BUSPIRONE HCL [Concomitant]
     Indication: DRUG USE FOR UNKNOWN INDICATION
     Dosage: 1/2 TABLET DAILY
     Route: 048
     Dates: end: 20080621
  3. MEGACE [Concomitant]
     Indication: DRUG USE FOR UNKNOWN INDICATION
     Dosage: UNK
     Route: 048
     Dates: end: 20080621
  4. PLAVIX [Suspect]
     Indication: THROMBOSIS
     Route: 048
     Dates: start: 20080612, end: 20080621
  5. AGGRENOX [Concomitant]
     Dosage: UNK
     Route: 048
     Dates: start: 20080627, end: 20080629

REACTIONS (3)
  - CONTUSION [None]
  - DEATH [None]
  - DYSPNOEA [None]
